FAERS Safety Report 6247868-4 (Version None)
Quarter: 2009Q2

REPORT INFORMATION
  Report Type: 
  Country: None (occurrence: None)
  Receive Date: 20090626
  Receipt Date: 20090331
  Transmission Date: 20091009
  Serious: No
  Sender: FDA-Public Use
  Company Number: US-TYCO HEALTHCARE/MALLINCKRODT-T200900769

PATIENT
  Sex: Male
  Weight: 73.469 kg

DRUGS (8)
  1. HYDROMORPHONE [Suspect]
     Indication: WOUND COMPLICATION
     Dosage: 1 MG (1/2 A TABLET), QD
     Dates: start: 20080901
  2. HYDROMORPHONE [Suspect]
     Indication: PAIN
     Dosage: 2 MG,  1 TAB EVERY 6 HRS PRN
     Route: 048
     Dates: start: 20090320
  3. LEXAPRO [Concomitant]
     Indication: DEPRESSION
     Dosage: 10 MG, QD
     Route: 048
  4. AMITIZA [Concomitant]
     Indication: IRRITABLE BOWEL SYNDROME
     Dosage: 8 MG, QD
     Route: 048
  5. TRAVATAN [Concomitant]
     Indication: GLAUCOMA
     Dosage: UNK
     Route: 047
  6. AVAPRO [Concomitant]
     Indication: BLOOD PRESSURE
     Dosage: UNK
     Route: 048
  7. PREVACID [Concomitant]
     Indication: GASTROOESOPHAGEAL REFLUX DISEASE
     Dosage: 30 MG, QD
     Route: 048
  8. ACETAMINOPHEN AND HYDROCODONE BITARTRATE [Concomitant]
     Indication: PAIN
     Dosage: 1/2 TAB Q1-2X PRN

REACTIONS (6)
  - DIZZINESS [None]
  - DRUG EFFECT DECREASED [None]
  - DRUG INEFFECTIVE [None]
  - DYSARTHRIA [None]
  - INCORRECT ROUTE OF DRUG ADMINISTRATION [None]
  - WRONG TECHNIQUE IN DRUG USAGE PROCESS [None]
